FAERS Safety Report 17668379 (Version 1)
Quarter: 2020Q2

REPORT INFORMATION
  Report Type: Spontaneous
  Country: PT (occurrence: PT)
  Receive Date: 20200415
  Receipt Date: 20200415
  Transmission Date: 20200713
  Serious: Yes (Life-Threatening, Other)
  Sender: FDA-Public Use
  Company Number: PT-ALVOGEN-2020-ALVOGEN-108118

PATIENT
  Age: 80 Year
  Sex: Male
  Weight: 60 kg

DRUGS (14)
  1. METAMIZOLE [Interacting]
     Active Substance: METAMIZOLE
     Indication: ANALGESIC THERAPY
     Dosage: 2000 MG
  2. PARECOXIB [Suspect]
     Active Substance: PARECOXIB
     Indication: ANALGESIC THERAPY
  3. PROPOFOL. [Interacting]
     Active Substance: PROPOFOL
     Indication: INDUCTION OF ANAESTHESIA
     Dosage: 15 MILLIGRAM
     Route: 065
  4. MIDAZOLAM. [Interacting]
     Active Substance: MIDAZOLAM
     Indication: ANAESTHETIC PREMEDICATION
     Dosage: 3 MG, UNK
     Dates: start: 20180614, end: 20180614
  5. ROCURONIUM [Interacting]
     Active Substance: ROCURONIUM BROMIDE
     Indication: PRODUCT USED FOR UNKNOWN INDICATION
     Dosage: 0.33 MG / KG
  6. ROCURONIUM [Interacting]
     Active Substance: ROCURONIUM BROMIDE
     Indication: INDUCTION OF ANAESTHESIA
     Dosage: 0.83 MG / KG
     Route: 042
  7. FENTANYL. [Suspect]
     Active Substance: FENTANYL
     Indication: INDUCTION OF ANAESTHESIA
  8. PROPOFOL. [Interacting]
     Active Substance: PROPOFOL
     Indication: PRODUCT USED FOR UNKNOWN INDICATION
     Dosage: 150 MILLIGRAM
     Route: 065
  9. SEVOFLURANE. [Interacting]
     Active Substance: SEVOFLURANE
     Indication: MAINTENANCE OF ANAESTHESIA
     Dosage: 1,0-1,2% IN A MIX OF 45% OF O2 AND AIR
  10. FENTANYL CITRATE. [Suspect]
     Active Substance: FENTANYL CITRATE
     Indication: PRODUCT USED FOR UNKNOWN INDICATION
     Route: 065
  11. O2 AND AIR [Concomitant]
     Indication: MAINTENANCE OF ANAESTHESIA
     Dosage: MIXTURE OF 45%
  12. PARACETAMOL [Interacting]
     Active Substance: ACETAMINOPHEN
     Indication: ANALGESIC THERAPY
     Dosage: 1000 MG, UNK
  13. REMIFENTANIL [Interacting]
     Active Substance: REMIFENTANIL
     Indication: MAINTENANCE OF ANAESTHESIA
     Dosage: 0.15 UG/KG; TIME INTERVAL: 0.15 MINUTES
     Route: 005
  14. SUGAMMADEX [Concomitant]
     Active Substance: SUGAMMADEX
     Indication: PRODUCT USED FOR UNKNOWN INDICATION
     Dosage: 200 MG, UNK
     Route: 065

REACTIONS (4)
  - Hypertension [Unknown]
  - Neuromuscular block prolonged [Recovered/Resolved]
  - Respiratory acidosis [Unknown]
  - Drug interaction [Recovered/Resolved]
